FAERS Safety Report 9099615 (Version 2)
Quarter: 2013Q1

REPORT INFORMATION
  Report Type: Spontaneous
  Country: ES (occurrence: ES)
  Receive Date: 20130214
  Receipt Date: 20130218
  Transmission Date: 20140127
  Serious: Yes (Other)
  Sender: FDA-Public Use
  Company Number: PHHY2013ES013268

PATIENT
  Age: 6 Year
  Sex: Male

DRUGS (10)
  1. EXJADE [Suspect]
     Indication: THALASSAEMIA BETA
     Dosage: 30 MG/KG, QD
     Route: 048
     Dates: start: 200904
  2. EXJADE [Suspect]
     Dosage: 35-40 MG, QD
     Route: 048
     Dates: start: 200904, end: 20121231
  3. EXJADE [Suspect]
     Dosage: 18 MG, QD
     Route: 048
     Dates: start: 201209
  4. EXJADE [Suspect]
     Dosage: 10 MG, QD
     Route: 048
     Dates: start: 201210
  5. EXJADE [Suspect]
     Dosage: 250 MG, QD
  6. DESFERRIOXAMINE [Concomitant]
     Indication: THALASSAEMIA BETA
     Dosage: 800 MG, 8H
     Route: 058
     Dates: start: 2010
  7. DESFERRIOXAMINE [Concomitant]
     Dosage: 500 MG, 8H
     Route: 058
     Dates: start: 2010
  8. DESFERRIOXAMINE [Concomitant]
     Dosage: 1000 MG, DAILY
     Route: 058
     Dates: start: 2010
  9. DESFERRIOXAMINE [Concomitant]
     Dosage: 23 MG/KG, UNK
     Route: 058
     Dates: start: 201210
  10. DEFERIPRONE [Concomitant]
     Route: 048

REACTIONS (5)
  - Nephropathy toxic [Not Recovered/Not Resolved]
  - Hypercalciuria [Not Recovered/Not Resolved]
  - Hyperuricosuria [Not Recovered/Not Resolved]
  - Renal tubular acidosis [Recovered/Resolved]
  - Alanine aminotransferase increased [Unknown]
